FAERS Safety Report 21211804 (Version 1)
Quarter: 2022Q3

REPORT INFORMATION
  Report Type: Spontaneous
  Country: US (occurrence: US)
  Receive Date: 20220815
  Receipt Date: 20220815
  Transmission Date: 20221027
  Serious: Yes (Other)
  Sender: FDA-Public Use
  Company Number: US-PFIZER INC-202201048995

PATIENT
  Age: 71 Year
  Sex: Female
  Weight: 80.74 kg

DRUGS (3)
  1. IBRANCE [Suspect]
     Active Substance: PALBOCICLIB
     Indication: Breast cancer female
     Dosage: 1 TABLET 21 DAYS AND 7 DAYS OFF
     Route: 048
     Dates: start: 20220702, end: 20220722
  2. LETROZOLE [Concomitant]
     Active Substance: LETROZOLE
     Indication: Breast cancer
     Dosage: 2.5 MG ONE TABLET
     Route: 048
     Dates: end: 2022
  3. FULVESTRANT [Concomitant]
     Active Substance: FULVESTRANT
     Indication: Breast cancer
     Dosage: EVERY 2 WEEKS

REACTIONS (9)
  - Back pain [Unknown]
  - Chest pain [Unknown]
  - Arthralgia [Unknown]
  - Nausea [Unknown]
  - Eating disorder [Unknown]
  - Anxiety [Unknown]
  - Panic disorder [Unknown]
  - Irritability [Unknown]
  - Burning sensation [Unknown]

NARRATIVE: CASE EVENT DATE: 20220101
